FAERS Safety Report 4515001-2 (Version None)
Quarter: 2004Q4

REPORT INFORMATION
  Report Type: 
  Country: None (occurrence: None)
  Receive Date: 20041129
  Receipt Date: 20041129
  Transmission Date: 20050328
  Serious: Yes (Life-Threatening, Hospitalization)
  Sender: FDA-Public Use
  Company Number: None

PATIENT
  Age: 54 Year
  Sex: Male
  Weight: 86.1 kg

DRUGS (9)
  1. THALIDOMIDE [Suspect]
     Indication: GLIOBLASTOMA MULTIFORME
     Dosage: 200 QD  ORAL
     Route: 048
     Dates: start: 20041007, end: 20041119
  2. CYTOXAN [Suspect]
     Indication: GLIOBLASTOMA MULTIFORME
     Dosage: 100MG   QD X 21 DAYS   ORAL
     Route: 048
     Dates: start: 20041027, end: 20041116
  3. BACTRIM DS [Suspect]
     Dates: start: 20041005, end: 20041119
  4. ETOPOSIDE [Suspect]
     Dates: start: 20041005, end: 20041026
  5. CELEBREX [Suspect]
     Dates: start: 20041007, end: 20041119
  6. NYSTATIN [Concomitant]
  7. DECADRON [Concomitant]
  8. ATIVAN [Concomitant]
  9. KEPPRA [Concomitant]

REACTIONS (12)
  - CANDIDIASIS [None]
  - CULTURE URINE POSITIVE [None]
  - DRY SKIN [None]
  - DYSPNOEA [None]
  - ENTEROCOCCAL INFECTION [None]
  - HYPOTENSION [None]
  - HYPOXIA [None]
  - MEDICATION ERROR [None]
  - NEUTROPENIA [None]
  - PNEUMONIA [None]
  - SEPSIS [None]
  - STEVENS-JOHNSON SYNDROME [None]
